FAERS Safety Report 24288394 (Version 1)
Quarter: 2024Q3

REPORT INFORMATION
  Report Type: Spontaneous
  Country: PT (occurrence: PT)
  Receive Date: 20240906
  Receipt Date: 20240906
  Transmission Date: 20241017
  Serious: Yes (Life-Threatening, Other)
  Sender: CELLTRION
  Company Number: PT-CELLTRION INC.-2024PT021032

PATIENT

DRUGS (1)
  1. RITUXIMAB [Suspect]
     Active Substance: RITUXIMAB
     Indication: Non-Hodgkin^s lymphoma
     Dosage: TWICE A YEAR, BIANNUAL RTX

REACTIONS (2)
  - Pneumonia [Recovering/Resolving]
  - Organising pneumonia [Recovering/Resolving]
